FAERS Safety Report 9507944 (Version 1)
Quarter: 2013Q1

REPORT INFORMATION
  Report Type: Spontaneous
  Country: US (occurrence: None)
  Receive Date: 20130305
  Receipt Date: 20130305
  Transmission Date: 20140127
  Serious: Yes (Other)
  Sender: FDA-Public Use
  Company Number: 163-21880-12021588

PATIENT
  Age: 75 Year
  Sex: Male
  Weight: 82.6 kg

DRUGS (2)
  1. REVLIMID (LENALIDOMIDE) [Suspect]
     Indication: PLASMA CELL MYELOMA
     Route: 048
     Dates: start: 20070412
  2. EXJADE (DEFERASIROX) [Concomitant]

REACTIONS (1)
  - Anaemia [None]
